FAERS Safety Report 4294806-X (Version None)
Quarter: 2004Q1

REPORT INFORMATION
  Report Type: 
  Country: None (occurrence: None)
  Receive Date: 20040216
  Receipt Date: 20030102
  Transmission Date: 20041129
  Serious: No
  Sender: FDA-Public Use
  Company Number: US-GLAXOSMITHKLINE-A0390349A

PATIENT
  Age: 61 Year
  Sex: Male

DRUGS (3)
  1. LAMICTAL [Suspect]
     Indication: ANXIETY DISORDER
     Dosage: 75MG PER DAY
     Route: 048
     Dates: start: 20021201
  2. DEPAKOTE [Concomitant]
     Dosage: 500MG PER DAY
     Route: 065
  3. KLONOPIN [Concomitant]

REACTIONS (3)
  - DIZZINESS [None]
  - MOTION SICKNESS [None]
  - NAUSEA [None]
